FAERS Safety Report 21738830 (Version 1)
Quarter: 2022Q4

REPORT INFORMATION
  Report Type: Spontaneous
  Country: US (occurrence: US)
  Receive Date: 20221216
  Receipt Date: 20221216
  Transmission Date: 20230113
  Serious: Yes (Hospitalization)
  Sender: FDA-Public Use
  Company Number: US-BRISTOL-MYERS SQUIBB COMPANY-2022-151686

PATIENT
  Age: 45 Year
  Sex: Male
  Weight: 77.47 kg

DRUGS (1)
  1. REVLIMID [Suspect]
     Active Substance: LENALIDOMIDE
     Indication: Plasma cell myeloma
     Dosage: D1-14 Q21 DAYS
     Route: 048
     Dates: start: 20221202, end: 20221209

REACTIONS (2)
  - Adverse event [Not Recovered/Not Resolved]
  - Off label use [Unknown]
